FAERS Safety Report 19254623 (Version 2)
Quarter: 2021Q2

REPORT INFORMATION
  Report Type: Spontaneous
  Country: US (occurrence: US)
  Receive Date: 20210513
  Receipt Date: 20210520
  Transmission Date: 20210717
  Serious: No
  Sender: FDA-Public Use
  Company Number: US-ORGANON-O2105USA000940

PATIENT
  Age: 27 Year
  Sex: Female
  Weight: 120.18 kg

DRUGS (1)
  1. IMPLANON [Suspect]
     Active Substance: ETONOGESTREL
     Dosage: 1 IMPLANT (68 MG ROD)
     Route: 059
     Dates: start: 201110

REACTIONS (3)
  - No adverse event [Unknown]
  - Incorrect product administration duration [Unknown]
  - Device issue [Not Recovered/Not Resolved]

NARRATIVE: CASE EVENT DATE: 201410
